FAERS Safety Report 19064528 (Version 1)
Quarter: 2021Q1

REPORT INFORMATION
  Report Type: Spontaneous
  Country: NL (occurrence: NL)
  Receive Date: 20210326
  Receipt Date: 20210326
  Transmission Date: 20210420
  Serious: Yes (Other)
  Sender: FDA-Public Use
  Company Number: NL-MYLANLABS-2021M1017430

PATIENT
  Sex: Male
  Weight: 90 kg

DRUGS (2)
  1. VENLAFAXINE [Suspect]
     Active Substance: VENLAFAXINE HYDROCHLORIDE
     Indication: DEPRESSION
     Dosage: 75 MILLIGRAM, QD (1 X PER DAY 1 CAPSULE)
     Dates: start: 20201104, end: 20201108
  2. OXAZEPAM. [Concomitant]
     Active Substance: OXAZEPAM
     Dosage: TABLET 10 MG, VERY OCCASIONAL USE HALF A TABLET. THE GENTLEMAN DOES NOT REMEMBER WHETHER HE HAD

REACTIONS (1)
  - Glaucoma [Recovered/Resolved]
